FAERS Safety Report 9852950 (Version 4)
Quarter: 2014Q2

REPORT INFORMATION
  Report Type: Spontaneous
  Country: US (occurrence: US)
  Receive Date: 20140129
  Receipt Date: 20140417
  Transmission Date: 20141212
  Serious: Yes (Hospitalization)
  Sender: FDA-Public Use
  Company Number: US-B.I. PHARMACEUTICALS,INC./RIDGEFIELD-2014-BI-03724BP

PATIENT
  Sex: Female
  Weight: 51.71 kg

DRUGS (7)
  1. PRADAXA [Suspect]
     Indication: CARDIAC DISORDER
     Dosage: 300 MG
     Route: 048
     Dates: start: 20110419, end: 20120204
  2. PRADAXA [Suspect]
     Indication: ATRIAL FIBRILLATION
  3. FUROSEMIDE [Concomitant]
     Dosage: 40 MG
     Route: 065
  4. COREG [Concomitant]
     Dosage: 12.5 MG
     Route: 065
  5. VITAMIN B12 [Concomitant]
     Route: 065
  6. VITAMIN D [Concomitant]
     Route: 065
  7. FOLIC ACID [Concomitant]
     Route: 065

REACTIONS (6)
  - Gastrointestinal haemorrhage [Unknown]
  - Haemorrhagic anaemia [Unknown]
  - Thrombosis [Unknown]
  - Coagulopathy [Unknown]
  - Renal failure acute [Unknown]
  - Cardiac failure acute [Unknown]
